FAERS Safety Report 17649975 (Version 1)
Quarter: 2020Q2

REPORT INFORMATION
  Report Type: Spontaneous
  Country: US (occurrence: US)
  Receive Date: 20200409
  Receipt Date: 20200409
  Transmission Date: 20200713
  Serious: No
  Sender: FDA-Public Use
  Company Number: US-MYLANLABS-2020M1033897

PATIENT
  Sex: Female
  Weight: 56.7 kg

DRUGS (6)
  1. METHOTREXATE (METHOTREXATE SODIUM) [Suspect]
     Active Substance: METHOTREXATE SODIUM
     Indication: ARTHRITIS
     Dosage: 4 DOSAGE FORM, QW (TAKE 4 TABLET ONCE A WEEK BY MOUTH)
     Route: 048
     Dates: start: 200902
  2. FOLIC ACID. [Concomitant]
     Active Substance: FOLIC ACID
     Indication: ARTHRITIS
     Dosage: 2 DOSAGE FORM, QD (TAKING 8 - 10 YEARS)
     Route: 048
     Dates: start: 200902
  3. CHANTIX [Concomitant]
     Active Substance: VARENICLINE TARTRATE
     Indication: SMOKING CESSATION THERAPY
     Dosage: 0.5MG X 11 AND 1MG X 42; GRADUAL INCREASE IN DAILY DOSE BY MOUTH FOR THE STARTER PACK; THEN 1 QD
  4. PRAVASTATIN. [Concomitant]
     Active Substance: PRAVASTATIN
     Indication: BLOOD CHOLESTEROL ABNORMAL
     Dosage: 1 DOSAGE FORM, QD
     Route: 048
     Dates: start: 202001
  5. ENBREL [Concomitant]
     Active Substance: ETANERCEPT
     Indication: ARTHRITIS
     Dosage: 50 MILLIGRAM, SURE CLICK INJECTION ONCE A WEEK
  6. FLUOXETINE [Concomitant]
     Active Substance: FLUOXETINE HYDROCHLORIDE
     Indication: MOOD ALTERED
     Dosage: 1 DOSAGE FORM, QD
     Route: 048

REACTIONS (1)
  - Therapeutic product effect incomplete [Unknown]
